FAERS Safety Report 5933173-X (Version None)
Quarter: 2008Q4

REPORT INFORMATION
  Report Type: 
  Country: None (occurrence: None)
  Receive Date: 20081023
  Receipt Date: 20070521
  Transmission Date: 20090506
  Serious: Yes (Other)
  Sender: FDA-Public Use
  Company Number: 2006AL002135

PATIENT
  Age: 56 Year
  Sex: Male

DRUGS (3)
  1. IBUPROFEN TABLETS [Suspect]
     Indication: ARTHRALGIA
     Dosage: 400 MG;QD;PO
     Route: 048
     Dates: start: 20060523, end: 20060525
  2. BENDROFLUAZIDE [Concomitant]
  3. ERYTHROMYCIN [Concomitant]

REACTIONS (1)
  - ERYTHEMA MULTIFORME [None]
